FAERS Safety Report 10155179 (Version 2)
Quarter: 2014Q3

REPORT INFORMATION
  Report Type: Spontaneous
  Country: US (occurrence: US)
  Receive Date: 20140506
  Receipt Date: 20140804
  Transmission Date: 20150326
  Serious: Yes (Other)
  Sender: FDA-Public Use
  Company Number: US-PFIZER INC-2014122615

PATIENT
  Age: 64 Year
  Sex: Male
  Weight: 93.42 kg

DRUGS (4)
  1. LYRICA [Suspect]
     Active Substance: PREGABALIN
     Indication: BACK PAIN
  2. LANTUS [Concomitant]
     Active Substance: INSULIN GLARGINE
     Indication: DIABETES MELLITUS
     Dosage: UNK
  3. LYRICA [Suspect]
     Active Substance: PREGABALIN
     Indication: NEUROPATHY PERIPHERAL
     Dosage: 1 CAPSULE OF 75 MG IN MORNING, 1 CAPSULE OF 75 MG AT NOON AND 2 CAPSULES OF 75 MG AT NIGHT , 3X/DAY
     Dates: start: 2013
  4. NOVOLOG [Concomitant]
     Active Substance: INSULIN ASPART
     Indication: DIABETES MELLITUS
     Dosage: UNK

REACTIONS (1)
  - Back disorder [Unknown]

NARRATIVE: CASE EVENT DATE: 20140312
